FAERS Safety Report 8182078-5 (Version None)
Quarter: 2012Q1

REPORT INFORMATION
  Report Type: 
  Country: None (occurrence: None)
  Receive Date: 20120302
  Receipt Date: 20120228
  Transmission Date: 20120608
  Serious: Yes (Death, Other)
  Sender: FDA-Public Use
  Company Number: FR-MERCK-1105FRA00067

PATIENT
  Age: 74 Year
  Sex: Male
  Weight: 86 kg

DRUGS (13)
  1. INSULIN DETEMIR [Concomitant]
     Indication: DIABETES MELLITUS
     Route: 051
     Dates: start: 20110331
  2. MOLSIDOMINE [Concomitant]
     Route: 065
  3. FUROSEMIDE [Concomitant]
     Indication: CARDIAC FAILURE
     Route: 065
  4. AMIODARONE [Concomitant]
     Indication: CARDIAC FAILURE
     Route: 065
  5. METFORMIN HCL [Suspect]
     Route: 048
     Dates: start: 20101001
  6. ACENOCOUMAROL [Concomitant]
     Indication: CEREBROVASCULAR ACCIDENT
     Route: 065
  7. PRAVASTATIN SODIUM [Concomitant]
     Route: 065
  8. JANUVIA [Suspect]
     Route: 048
     Dates: start: 20101001, end: 20110101
  9. ACENOCOUMAROL [Concomitant]
     Indication: CARDIAC FAILURE
     Route: 065
  10. PERINDOPRIL ERBUMINE [Concomitant]
     Indication: CARDIAC FAILURE
     Route: 065
  11. SPIRONOLACTONE [Concomitant]
     Route: 065
  12. JANUVIA [Suspect]
     Indication: DIABETES MELLITUS
     Route: 048
     Dates: start: 20100819, end: 20101001
  13. METFORMIN HCL [Suspect]
     Indication: DIABETES MELLITUS
     Route: 048
     Dates: start: 20020101, end: 20101001

REACTIONS (4)
  - MYOCARDIAL INFARCTION [None]
  - DRUG INEFFECTIVE [None]
  - OVERDOSE [None]
  - MALIGNANT NEOPLASM OF AMPULLA OF VATER [None]
